FAERS Safety Report 8059887-6 (Version None)
Quarter: 2012Q1

REPORT INFORMATION
  Report Type: 
  Country: None (occurrence: None)
  Receive Date: 20120120
  Receipt Date: 20120110
  Transmission Date: 20120608
  Serious: Yes (Hospitalization)
  Sender: FDA-Public Use
  Company Number: US-JNJFOC-20100901825

PATIENT
  Age: 31 Year
  Sex: Female
  Weight: 20.41 kg

DRUGS (5)
  1. ARIPIPRAZOLE [Suspect]
     Indication: PSYCHIATRIC SYMPTOM
  2. SERTRALINE HYDROCHLORIDE [Concomitant]
     Indication: PSYCHIATRIC SYMPTOM
  3. ACETAMINOPHEN [Suspect]
     Route: 048
  4. ACETAMINOPHEN [Suspect]
     Indication: ILL-DEFINED DISORDER
     Dosage: 13,000MG TAKEN
     Route: 048
     Dates: start: 20100825, end: 20100825
  5. ALCOHOL [Suspect]
     Indication: ILL-DEFINED DISORDER

REACTIONS (2)
  - INTENTIONAL OVERDOSE [None]
  - INTENTIONAL SELF-INJURY [None]
